FAERS Safety Report 19581050 (Version 1)
Quarter: 2021Q3

REPORT INFORMATION
  Report Type: Spontaneous
  Country: US (occurrence: US)
  Receive Date: 20210719
  Receipt Date: 20210719
  Transmission Date: 20211014
  Serious: Yes (Hospitalization)
  Sender: FDA-Public Use
  Company Number: None

PATIENT
  Sex: Female

DRUGS (8)
  1. TRAMADOL. [Concomitant]
     Active Substance: TRAMADOL
  2. CIMZIA [Suspect]
     Active Substance: CERTOLIZUMAB PEGOL
     Indication: RHEUMATOID ARTHRITIS
     Dosage: OTHER FREQUENCY:Q2WKS;?
     Route: 058
     Dates: start: 20210304
  3. FOLIC ACID. [Concomitant]
     Active Substance: FOLIC ACID
  4. OTEZLA [Concomitant]
     Active Substance: APREMILAST
  5. CIMZIA [Suspect]
     Active Substance: CERTOLIZUMAB PEGOL
     Indication: PSORIATIC ARTHROPATHY
     Dosage: OTHER FREQUENCY:Q2WKS;?
     Route: 058
     Dates: start: 20210304
  6. HYDROCO/APAP [Concomitant]
     Active Substance: ACETAMINOPHEN\HYDROCODONE
  7. CYCLOBENZAPRINE. [Concomitant]
     Active Substance: CYCLOBENZAPRINE
  8. XARELTO [Concomitant]
     Active Substance: RIVAROXABAN

REACTIONS (2)
  - Condition aggravated [None]
  - Pain [None]
